FAERS Safety Report 9001919 (Version 3)
Quarter: 2013Q2

REPORT INFORMATION
  Report Type: Report from Study
  Country: US (occurrence: US)
  Receive Date: 20130107
  Receipt Date: 20130424
  Transmission Date: 20140414
  Serious: Yes (Hospitalization, Other)
  Sender: FDA-Public Use
  Company Number: US-ROCHE-1176663

PATIENT
  Age: 64 Year
  Sex: Male
  Weight: 91.39 kg

DRUGS (26)
  1. XOLAIR [Suspect]
     Indication: ASTHMA
     Route: 058
     Dates: start: 20121129, end: 20121129
  2. ALBUTEROL [Concomitant]
     Indication: WHEEZING
     Dosage: 2 PUFFS
     Route: 065
  3. PLAQUENIL [Concomitant]
     Route: 048
  4. MOBIC [Concomitant]
     Route: 048
  5. CLARITIN [Concomitant]
     Route: 048
  6. NASACORT AQ [Concomitant]
     Route: 065
  7. ASPIRIN [Concomitant]
     Route: 048
  8. PREDNISONE [Concomitant]
     Route: 048
  9. SALAGEN [Concomitant]
     Route: 048
  10. PRILOSEC [Concomitant]
     Route: 048
  11. TERAZOSIN HCL [Concomitant]
     Route: 048
  12. GUAIFENESIN [Concomitant]
     Route: 048
  13. TYLENOL [Concomitant]
     Indication: ARTHRALGIA
     Route: 048
  14. TRAMADOL HCL [Concomitant]
     Route: 065
  15. TESTOSTERONE CYPIONATE [Concomitant]
     Dosage: 200 MG/ML, 2 CC
     Route: 065
  16. ALVESCO [Concomitant]
     Route: 065
  17. FORADIL P [Concomitant]
     Route: 065
  18. TOPRAL [Concomitant]
     Route: 048
  19. TOPRAL [Concomitant]
     Route: 048
  20. SINGULAIR [Concomitant]
     Route: 048
  21. AVODART [Concomitant]
     Route: 048
  22. ACTONEL [Concomitant]
     Route: 048
  23. ZOLOFT [Concomitant]
     Route: 048
  24. EPIPEN [Concomitant]
     Dosage: 0.3MG/0.3ML
     Route: 065
  25. TRAMADOL HCL [Concomitant]
     Route: 065
  26. TUSSIONEX PENNKINETIC SUSPENSION [Concomitant]
     Indication: COUGH
     Dosage: 8-10 MG/5 ML, ONE TEASPOON .
     Route: 065

REACTIONS (10)
  - Feeling abnormal [Recovering/Resolving]
  - Chest discomfort [Not Recovered/Not Resolved]
  - Rash [Recovering/Resolving]
  - Deafness [Recovered/Resolved]
  - Circumoral oedema [Recovering/Resolving]
  - Chest discomfort [Recovering/Resolving]
  - Pruritus [Unknown]
  - Headache [Recovering/Resolving]
  - Burning sensation [Recovering/Resolving]
  - Injection related reaction [Recovered/Resolved]
